FAERS Safety Report 6896578-9 (Version None)
Quarter: 2010Q3

REPORT INFORMATION
  Report Type: 
  Country: None (occurrence: None)
  Receive Date: 20100729
  Receipt Date: 20100720
  Transmission Date: 20110219
  Serious: Yes (Other)
  Sender: FDA-Public Use
  Company Number: 2010EU003601

PATIENT
  Age: 60 Year
  Sex: Female

DRUGS (3)
  1. PROGRAF [Suspect]
     Indication: LIVER TRANSPLANT
     Dosage: ORAL
     Route: 048
     Dates: start: 20090801
  2. CELLCEPT [Concomitant]
  3. CORTICOSTEROIDS [Concomitant]

REACTIONS (7)
  - BEDRIDDEN [None]
  - DRUG LEVEL ABOVE THERAPEUTIC [None]
  - LUNG DISORDER [None]
  - NEPHRITIC SYNDROME [None]
  - NEUROTOXICITY [None]
  - OVERDOSE [None]
  - TREMOR [None]
